FAERS Safety Report 14297532 (Version 1)
Quarter: 2017Q4

REPORT INFORMATION
  Report Type: Spontaneous
  Country: DK (occurrence: DK)
  Receive Date: 20171218
  Receipt Date: 20171218
  Transmission Date: 20180321
  Serious: Yes (Other)
  Sender: FDA-Public Use
  Company Number: DK-BRISTOL-MYERS SQUIBB COMPANY-BMS-2016-082492

PATIENT
  Age: 41 Year
  Sex: Female

DRUGS (1)
  1. KENALOG [Suspect]
     Active Substance: TRIAMCINOLONE ACETONIDE
     Indication: UVEITIS
     Dosage: 1 ML, UNK
     Route: 050
     Dates: start: 20160902

REACTIONS (15)
  - Ophthalmoplegia [Recovering/Resolving]
  - Visual impairment [Recovering/Resolving]
  - Diplopia [Recovered/Resolved]
  - Off label use [Unknown]
  - Headache [Not Recovered/Not Resolved]
  - Vision blurred [Recovered/Resolved]
  - Dizziness [Not Recovered/Not Resolved]
  - Injection site pain [Recovered/Resolved]
  - Product substitution issue [Not Recovered/Not Resolved]
  - Infection [Unknown]
  - Exophthalmos [Recovering/Resolving]
  - Eye movement disorder [Recovering/Resolving]
  - Erysipelas [Unknown]
  - Strabismus [Recovering/Resolving]
  - Product use in unapproved indication [Unknown]

NARRATIVE: CASE EVENT DATE: 201609
